FAERS Safety Report 17434715 (Version 2)
Quarter: 2020Q1

REPORT INFORMATION
  Report Type: Spontaneous
  Country: SE (occurrence: SE)
  Receive Date: 20200219
  Receipt Date: 20200226
  Transmission Date: 20200409
  Serious: Yes (Hospitalization)
  Sender: FDA-Public Use
  Company Number: SE-MYLANLABS-2020M1016732

PATIENT
  Age: 84 Year
  Sex: Female

DRUGS (1)
  1. DONEPEZIL. [Suspect]
     Active Substance: DONEPEZIL
     Indication: COGNITIVE DISORDER
     Dosage: 10MG 1X1
     Route: 048
     Dates: start: 20191019, end: 20191203

REACTIONS (2)
  - Aggression [Recovered/Resolved]
  - Suspiciousness [Recovered/Resolved]

NARRATIVE: CASE EVENT DATE: 20191127
